FAERS Safety Report 15423828 (Version 2)
Quarter: 2018Q4

REPORT INFORMATION
  Report Type: Spontaneous
  Country: FR (occurrence: FR)
  Receive Date: 20180925
  Receipt Date: 20181006
  Transmission Date: 20190204
  Serious: Yes (Hospitalization, Other)
  Sender: FDA-Public Use
  Company Number: FR-AUROBINDO-AUR-APL-2018-046945

PATIENT
  Age: 56 Year
  Sex: Female

DRUGS (3)
  1. TRASTUZUMAB. [Suspect]
     Active Substance: TRASTUZUMAB
     Indication: BREAST CANCER
     Dosage: 440 MG,1X ; IN TOTAL
     Route: 042
     Dates: start: 20111125, end: 20111125
  2. TAXOTERE [Suspect]
     Active Substance: DOCETAXEL
     Indication: BREAST CANCER
     Dosage: 110 MG,1X ; IN TOTAL
     Route: 042
     Dates: start: 20111125, end: 20111125
  3. CARBOPLATIN SOLUTION FOR INFUSION [Suspect]
     Active Substance: CARBOPLATIN
     Indication: BREAST CANCER
     Dosage: 540 MG, TOTAL ; IN TOTAL
     Route: 042
     Dates: start: 20111125, end: 20111125

REACTIONS (1)
  - Diarrhoea haemorrhagic [Recovered/Resolved]

NARRATIVE: CASE EVENT DATE: 20111202
